FAERS Safety Report 5188729-1 (Version None)
Quarter: 2006Q4

REPORT INFORMATION
  Report Type: 
  Country: None (occurrence: None)
  Receive Date: 20061215
  Receipt Date: 20061205
  Transmission Date: 20070319
  Serious: Yes (Other)
  Sender: FDA-Public Use
  Company Number: 2006150874

PATIENT
  Age: 48 Year
  Sex: Female

DRUGS (2)
  1. NORVASC [Suspect]
     Dosage: (10MG)
  2. HYDROCHLOROTHIAZIDE [Suspect]
     Dosage: (5 MG)

REACTIONS (1)
  - BLOOD PRESSURE INCREASED [None]
